FAERS Safety Report 8235161-X (Version None)
Quarter: 2012Q1

REPORT INFORMATION
  Report Type: 
  Country: None (occurrence: None)
  Receive Date: 20120326
  Receipt Date: 20120314
  Transmission Date: 20120608
  Serious: Yes (Other)
  Sender: FDA-Public Use
  Company Number: US-ROCHE-793723

PATIENT
  Sex: Male
  Weight: 95.3 kg

DRUGS (1)
  1. ACCUTANE [Suspect]
     Indication: ACNE CYSTIC
     Route: 065
     Dates: start: 19971212, end: 19980801

REACTIONS (12)
  - HAEMATOCHEZIA [None]
  - BLOOD TRIGLYCERIDES INCREASED [None]
  - INFLAMMATORY BOWEL DISEASE [None]
  - SUICIDAL IDEATION [None]
  - ABDOMINAL PAIN [None]
  - GASTROINTESTINAL DISORDER [None]
  - RECTAL HAEMORRHAGE [None]
  - ULCER HAEMORRHAGE [None]
  - DRY SKIN [None]
  - DEPRESSION [None]
  - BLOOD CHOLESTEROL INCREASED [None]
  - CHEILITIS [None]
